FAERS Safety Report 15714154 (Version 3)
Quarter: 2019Q1

REPORT INFORMATION
  Report Type: Spontaneous
  Country: DE (occurrence: DE)
  Receive Date: 20181212
  Receipt Date: 20190130
  Transmission Date: 20190417
  Serious: No
  Sender: FDA-Public Use
  Company Number: DE-AMGEN-DEUSP2018175359

PATIENT
  Age: 62 Year
  Sex: Female
  Weight: 63 kg

DRUGS (3)
  1. PREDNISOLONE. [Concomitant]
     Active Substance: PREDNISOLONE
     Dosage: UNK
  2. PROLIA [Suspect]
     Active Substance: DENOSUMAB
     Indication: OSTEOPOROSIS
     Dosage: UNK
     Route: 065
     Dates: start: 20180920
  3. PROLIA [Suspect]
     Active Substance: DENOSUMAB
     Indication: SPINAL FRACTURE

REACTIONS (5)
  - Nausea [Unknown]
  - Diarrhoea [Unknown]
  - Nasopharyngitis [Recovered/Resolved]
  - Abdominal pain [Unknown]
  - Bone pain [Recovering/Resolving]

NARRATIVE: CASE EVENT DATE: 20180920
